FAERS Safety Report 5959614-X (Version None)
Quarter: 2008Q4

REPORT INFORMATION
  Report Type: 
  Country: None (occurrence: None)
  Receive Date: 20081120
  Receipt Date: 20081112
  Transmission Date: 20090506
  Serious: Yes (Hospitalization)
  Sender: FDA-Public Use
  Company Number: CA-AMGEN-KDL310797

PATIENT
  Sex: Male
  Weight: 82 kg

DRUGS (4)
  1. ENBREL [Suspect]
     Indication: ANKYLOSING SPONDYLITIS
     Route: 058
     Dates: start: 20080930, end: 20080930
  2. METHOTREXATE [Concomitant]
     Route: 048
     Dates: start: 20080601
  3. ARTHROTEC [Concomitant]
     Dates: start: 20080601
  4. FOLIC ACID [Concomitant]
     Dates: start: 20080601

REACTIONS (2)
  - ANAPHYLACTIC SHOCK [None]
  - HYPOAESTHESIA [None]
